FAERS Safety Report 15980818 (Version 1)
Quarter: 2019Q1

REPORT INFORMATION
  Report Type: Spontaneous
  Country: DE (occurrence: DE)
  Receive Date: 20190219
  Receipt Date: 20190219
  Transmission Date: 20190418
  Serious: Yes (Other)
  Sender: FDA-Public Use
  Company Number: DE-PFIZER INC-2019069870

PATIENT
  Sex: Female

DRUGS (1)
  1. RAMILICH [Suspect]
     Active Substance: RAMIPRIL
     Dosage: UNK, 1X/DAY
     Route: 065

REACTIONS (16)
  - Electrocardiogram QT prolonged [Not Recovered/Not Resolved]
  - Pulmonary hypertension [Not Recovered/Not Resolved]
  - Headache [Not Recovered/Not Resolved]
  - Vasculitis [Not Recovered/Not Resolved]
  - Microangiopathy [Not Recovered/Not Resolved]
  - Hypoacusis [Not Recovered/Not Resolved]
  - Weight decreased [Not Recovered/Not Resolved]
  - Night sweats [Not Recovered/Not Resolved]
  - Muscular weakness [Not Recovered/Not Resolved]
  - Cardiac disorder [Not Recovered/Not Resolved]
  - Renal disorder [Not Recovered/Not Resolved]
  - Malaise [Not Recovered/Not Resolved]
  - Dizziness [Not Recovered/Not Resolved]
  - Disturbance in attention [Not Recovered/Not Resolved]
  - Head discomfort [Not Recovered/Not Resolved]
  - Condition aggravated [Not Recovered/Not Resolved]

NARRATIVE: CASE EVENT DATE: 20190121
